FAERS Safety Report 10405886 (Version 3)
Quarter: 2014Q3

REPORT INFORMATION
  Report Type: Spontaneous
  Country: CH (occurrence: CH)
  Receive Date: 20140825
  Receipt Date: 20140908
  Transmission Date: 20150326
  Serious: Yes (Hospitalization)
  Sender: FDA-Public Use
  Company Number: PHHY2014CH104719

PATIENT
  Sex: Female

DRUGS (1)
  1. GILENYA [Suspect]
     Active Substance: FINGOLIMOD HYDROCHLORIDE
     Indication: MULTIPLE SCLEROSIS
     Dosage: 1 DF, QD
     Route: 048
     Dates: start: 20140306, end: 20140726

REACTIONS (15)
  - Abdominal pain [Unknown]
  - Gastrointestinal sounds abnormal [Unknown]
  - Diarrhoea [Unknown]
  - Crohn^s disease [Recovered/Resolved]
  - Pyrexia [Recovered/Resolved]
  - Aphthous stomatitis [Unknown]
  - Normochromic normocytic anaemia [Unknown]
  - Hepatitis A [Unknown]
  - Bladder irritation [Unknown]
  - Systemic inflammatory response syndrome [Recovered/Resolved]
  - Vomiting [Unknown]
  - Constipation [Unknown]
  - General physical health deterioration [Unknown]
  - Bowel movement irregularity [Recovered/Resolved]
  - Chills [Recovered/Resolved]

NARRATIVE: CASE EVENT DATE: 20140724
